FAERS Safety Report 7461419-8 (Version None)
Quarter: 2011Q2

REPORT INFORMATION
  Report Type: 
  Country: None (occurrence: None)
  Receive Date: 20110428
  Receipt Date: 20110217
  Transmission Date: 20111010
  Serious: Yes (Death, Hospitalization)
  Sender: FDA-Public Use
  Company Number: 2011GW000025

PATIENT
  Age: 89 Year
  Sex: Male

DRUGS (1)
  1. ZYCLARA [Suspect]
     Indication: ACTINIC KERATOSIS
     Dosage: 3.75 PCT;HS;TOP
     Route: 061
     Dates: start: 20101019, end: 20101101

REACTIONS (25)
  - THROMBOCYTOPENIA [None]
  - ACUTE CORONARY SYNDROME [None]
  - AORTIC VALVE CALCIFICATION [None]
  - CONDITION AGGRAVATED [None]
  - UNRESPONSIVE TO STIMULI [None]
  - CHRONIC OBSTRUCTIVE PULMONARY DISEASE [None]
  - BRONCHITIS [None]
  - PNEUMONIA [None]
  - HYPOTENSION [None]
  - BRADYCARDIA [None]
  - RENAL FAILURE ACUTE [None]
  - CLOSTRIDIUM DIFFICILE COLITIS [None]
  - NASOPHARYNGITIS [None]
  - BLOOD GLUCOSE INCREASED [None]
  - VOMITING [None]
  - LEUKOCYTOSIS [None]
  - BENIGN PROSTATIC HYPERPLASIA [None]
  - DEHYDRATION [None]
  - APNOEA [None]
  - PULSELESS ELECTRICAL ACTIVITY [None]
  - ATRIAL FIBRILLATION [None]
  - STAPHYLOCOCCAL SEPSIS [None]
  - AORTIC STENOSIS [None]
  - URINARY RETENTION [None]
  - CIRCULATORY COLLAPSE [None]
